FAERS Safety Report 22788173 (Version 3)
Quarter: 2023Q4

REPORT INFORMATION
  Report Type: Spontaneous
  Country: US (occurrence: US)
  Receive Date: 20230804
  Receipt Date: 20231018
  Transmission Date: 20240109
  Serious: No
  Sender: FDA-Public Use
  Company Number: US-ALXN-A202310013

PATIENT
  Sex: Female

DRUGS (1)
  1. ULTOMIRIS [Suspect]
     Active Substance: RAVULIZUMAB-CWVZ
     Indication: Myasthenia gravis
     Dosage: UNK
     Route: 065

REACTIONS (4)
  - Flushing [Unknown]
  - Spinal disorder [Unknown]
  - Arthritis [Unknown]
  - Stenosis [Unknown]
